FAERS Safety Report 9640908 (Version 2)
Quarter: 2013Q4

REPORT INFORMATION
  Report Type: Report from Study
  Country: US (occurrence: US)
  Receive Date: 20131023
  Receipt Date: 20131023
  Transmission Date: 20140711
  Serious: No
  Sender: FDA-Public Use
  Company Number: US-ABBVIE-13P-163-1067555-00

PATIENT
  Age: 43 Year
  Sex: Female
  Weight: 61.29 kg

DRUGS (3)
  1. LUPRON DEPOT [Suspect]
     Indication: ENDOMETRIOSIS
     Route: 030
     Dates: start: 20130318
  2. ADVIL [Concomitant]
     Indication: DYSMENORRHOEA
     Dosage: 400-600MG EVERY 3 HOURS AS NEEDED
     Route: 048
  3. MIDOL [Concomitant]
     Indication: DYSMENORRHOEA
     Dosage: 2 PILLS DAILY IN THE MORNING AS NEEDED
     Route: 048

REACTIONS (4)
  - Headache [Not Recovered/Not Resolved]
  - Hot flush [Not Recovered/Not Resolved]
  - Night sweats [Not Recovered/Not Resolved]
  - Aphasia [Not Recovered/Not Resolved]
